FAERS Safety Report 12866527 (Version 1)
Quarter: 2016Q4

REPORT INFORMATION
  Report Type: Spontaneous
  Country: FR (occurrence: FR)
  Receive Date: 20161020
  Receipt Date: 20161020
  Transmission Date: 20170207
  Serious: Yes (Other)
  Sender: FDA-Public Use
  Company Number: FR-PFIZER INC-2016235457

PATIENT
  Sex: Female

DRUGS (2)
  1. EFFEXOR LP [Suspect]
     Active Substance: VENLAFAXINE HYDROCHLORIDE
     Indication: DEPRESSION
     Dosage: 112.5 MG, 1X/DAY
     Route: 064
     Dates: start: 2015
  2. EFFEXOR LP [Suspect]
     Active Substance: VENLAFAXINE HYDROCHLORIDE
     Indication: ANXIETY

REACTIONS (4)
  - Placental disorder [Unknown]
  - Maternal exposure during pregnancy [Unknown]
  - Premature baby [Unknown]
  - Foetal distress syndrome [Unknown]

NARRATIVE: CASE EVENT DATE: 20160603
